FAERS Safety Report 15595542 (Version 4)
Quarter: 2020Q3

REPORT INFORMATION
  Report Type: Report from Study
  Country: BR (occurrence: BR)
  Receive Date: 20181107
  Receipt Date: 20190206
  Transmission Date: 20201104
  Serious: Yes (Hospitalization)
  Sender: FDA-Public Use
  Company Number: BR-JNJFOC-20181042161

PATIENT
  Age: 64 Year
  Sex: Female
  Weight: 84.9 kg

DRUGS (11)
  1. DULOXETINA [Concomitant]
     Active Substance: DULOXETINE
     Indication: FIBROMYALGIA
     Route: 048
  2. ZOLPIDEM [Concomitant]
     Active Substance: ZOLPIDEM TARTRATE
     Indication: FIBROMYALGIA
     Route: 048
  3. CODEINE [Concomitant]
     Active Substance: CODEINE
     Indication: OSTEOARTHRITIS
     Route: 048
  4. ACICLOVIR [Concomitant]
     Active Substance: ACYCLOVIR
     Indication: PROPHYLAXIS
     Route: 048
     Dates: start: 20180906
  5. DIACEREINA [Concomitant]
     Indication: OSTEOARTHRITIS
     Route: 048
  6. PANTOPRAZOLE [Concomitant]
     Active Substance: PANTOPRAZOLE
     Indication: GASTROINTESTINAL DISORDER THERAPY
     Route: 048
  7. BACTRIM [Concomitant]
     Active Substance: SULFAMETHOXAZOLE\TRIMETHOPRIM
     Indication: PROPHYLAXIS
     Route: 048
     Dates: start: 20180906
  8. DARATUMUMAB [Suspect]
     Active Substance: DARATUMUMAB
     Route: 058
  9. DARATUMUMAB [Suspect]
     Active Substance: DARATUMUMAB
     Indication: PLASMA CELL MYELOMA
     Dosage: WEEKLY
     Route: 058
     Dates: start: 20180906, end: 20181015
  10. PARACETAMOL [Concomitant]
     Active Substance: ACETAMINOPHEN
     Indication: OSTEOARTHRITIS
     Route: 048
  11. PREGABALINA [Concomitant]
     Active Substance: PREGABALIN
     Indication: FIBROMYALGIA
     Route: 048

REACTIONS (1)
  - Pyelonephritis [Recovered/Resolved]

NARRATIVE: CASE EVENT DATE: 20181026
